FAERS Safety Report 9469802 (Version 1)
Quarter: 2013Q3

REPORT INFORMATION
  Report Type: Spontaneous
  Country: BR (occurrence: BR)
  Receive Date: 20130822
  Receipt Date: 20130822
  Transmission Date: 20140515
  Serious: Yes (Other)
  Sender: FDA-Public Use
  Company Number: BR-JNJFOC-20130807729

PATIENT
  Age: 32 Year
  Sex: Male
  Weight: 56.2 kg

DRUGS (8)
  1. REMICADE [Suspect]
     Indication: COLITIS
     Route: 042
  2. REMICADE [Suspect]
     Indication: COLITIS
     Route: 042
     Dates: start: 20121227
  3. REMICADE [Suspect]
     Indication: COLITIS
     Route: 042
  4. REMICADE [Suspect]
     Indication: CROHN^S DISEASE
     Route: 042
     Dates: start: 20121227
  5. REMICADE [Suspect]
     Indication: CROHN^S DISEASE
     Route: 042
  6. REMICADE [Suspect]
     Indication: CROHN^S DISEASE
     Route: 042
  7. MESALAZINE [Concomitant]
     Indication: CROHN^S DISEASE
     Route: 065
     Dates: start: 201212, end: 201308
  8. AZATHIOPRINE [Concomitant]
     Indication: CROHN^S DISEASE
     Route: 065
     Dates: start: 201212

REACTIONS (3)
  - Pertussis [Recovered/Resolved]
  - Herpes zoster [Recovering/Resolving]
  - Influenza [Not Recovered/Not Resolved]
